FAERS Safety Report 11112443 (Version 2)
Quarter: 2015Q2

REPORT INFORMATION
  Report Type: Spontaneous
  Country: BR (occurrence: BR)
  Receive Date: 20150514
  Receipt Date: 20150520
  Transmission Date: 20150821
  Serious: Yes (Hospitalization, Other)
  Sender: FDA-Public Use
  Company Number: BR-ASTRAZENECA-2015SE43001

PATIENT
  Age: 58 Year
  Sex: Female
  Weight: 59.9 kg

DRUGS (4)
  1. SPIRIVA [Concomitant]
     Active Substance: TIOTROPIUM BROMIDE MONOHYDRATE
     Indication: EMPHYSEMA
     Dosage: EVERY DAY 2 JETS/DIARY
     Route: 055
  2. ALENIA [Suspect]
     Active Substance: BUDESONIDE\FORMOTEROL FUMARATE
     Indication: EMPHYSEMA
     Dosage: TWO TIMES A DAY
     Route: 055
     Dates: start: 2008, end: 2015
  3. HYDROCHLOROTHIAZIDE. [Suspect]
     Active Substance: HYDROCHLOROTHIAZIDE
     Route: 065
     Dates: start: 2011
  4. ALENIA [Suspect]
     Active Substance: BUDESONIDE\FORMOTEROL FUMARATE
     Indication: EMPHYSEMA
     Dosage: 320/9 MCG,TWO TIMES A DAY
     Route: 055
     Dates: start: 201501

REACTIONS (8)
  - Dyspnoea [Not Recovered/Not Resolved]
  - Weight decreased [Recovering/Resolving]
  - Asthenia [Recovered/Resolved]
  - Upper limb fracture [Recovered/Resolved]
  - Decreased appetite [Recovering/Resolving]
  - Hypertension [Recovered/Resolved]
  - Fall [Recovered/Resolved]
  - Pneumonia [Recovered/Resolved]

NARRATIVE: CASE EVENT DATE: 2011
